FAERS Safety Report 7356354-X (Version None)
Quarter: 2011Q1

REPORT INFORMATION
  Report Type: 
  Country: None (occurrence: None)
  Receive Date: 20110316
  Receipt Date: 20110311
  Transmission Date: 20110831
  Serious: Yes (Other)
  Sender: FDA-Public Use
  Company Number: JP-PFIZER INC-2011054979

PATIENT
  Sex: Male

DRUGS (1)
  1. ARTANE [Suspect]
     Indication: DYSTONIA
     Dosage: 4 MG, 3X/DAY
     Route: 048

REACTIONS (8)
  - ALTERED STATE OF CONSCIOUSNESS [None]
  - VISION BLURRED [None]
  - VISUAL FIELD DEFECT [None]
  - AGITATION [None]
  - HALLUCINATION, AUDITORY [None]
  - CONSTIPATION [None]
  - THIRST [None]
  - NAUSEA [None]
